FAERS Safety Report 10062877 (Version 1)
Quarter: 2014Q2

REPORT INFORMATION
  Report Type: Spontaneous
  Country: DE (occurrence: DE)
  Receive Date: 20140407
  Receipt Date: 20140407
  Transmission Date: 20141212
  Serious: Yes (Death)
  Sender: FDA-Public Use
  Company Number: DE-AMGEN INC.-DEUSP2014023143

PATIENT
  Age: 43 Year
  Sex: Male

DRUGS (1)
  1. FILGRASTIM [Suspect]
     Indication: PRODUCT USED FOR UNKNOWN INDICATION
     Dosage: UNK UNK, FOR FIVE CONSECUTIVE DAYS EVERY FOUR WEEKS, (DOSE: 5 MUG/KGBW ONCE A DAY TO TWICE A DAY (10
     Route: 058

REACTIONS (2)
  - Disease progression [Fatal]
  - Bone pain [Unknown]
